FAERS Safety Report 13635741 (Version 1)
Quarter: 2017Q2

REPORT INFORMATION
  Report Type: Spontaneous
  Country: US (occurrence: US)
  Receive Date: 20170608
  Receipt Date: 20170608
  Transmission Date: 20170830
  Serious: Yes (Death, Hospitalization)
  Sender: FDA-Public Use
  Company Number: None

PATIENT
  Age: 38 Year
  Sex: Male

DRUGS (3)
  1. MODAFONIL [Concomitant]
  2. LISINOPRIL. [Concomitant]
     Active Substance: LISINOPRIL
  3. VICTOZA [Suspect]
     Active Substance: LIRAGLUTIDE
     Indication: FOOD CRAVING
     Dosage: ?          QUANTITY:1 INJECTION(S);?
     Route: 058
     Dates: start: 20170117, end: 20170228

REACTIONS (3)
  - Pancreatitis acute [None]
  - Renal failure [None]
  - Coma [None]

NARRATIVE: CASE EVENT DATE: 20170301
